FAERS Safety Report 8532695-5 (Version None)
Quarter: 2012Q3

REPORT INFORMATION
  Report Type: 
  Country: None (occurrence: None)
  Receive Date: 20120724
  Receipt Date: 20120717
  Transmission Date: 20120928
  Serious: Yes (Other)
  Sender: FDA-Public Use
  Company Number: PHHY2011BR29673

PATIENT
  Sex: Female
  Weight: 59 kg

DRUGS (3)
  1. ALDACTONE [Concomitant]
     Indication: DIURETIC THERAPY
     Dosage: 1 TABLET A DAY
  2. EXELON [Suspect]
     Indication: DEMENTIA ALZHEIMER'S TYPE
     Dosage: 1 PATCH (18MG/10CM2) A DAY
     Route: 062
  3. CARVEDILOL [Concomitant]
     Indication: CARDIAC DISORDER
     Dosage: 1 TABLET A DAY

REACTIONS (9)
  - FALL [None]
  - APPLICATION SITE IRRITATION [None]
  - OSTEOARTHRITIS [None]
  - FEMUR FRACTURE [None]
  - OSTEOPOROSIS [None]
  - PAIN IN EXTREMITY [None]
  - BACK PAIN [None]
  - REPETITIVE SPEECH [None]
  - APPLICATION SITE PRURITUS [None]
